FAERS Safety Report 12621559 (Version 2)
Quarter: 2016Q3

REPORT INFORMATION
  Report Type: Spontaneous
  Country: US (occurrence: US)
  Receive Date: 20160804
  Receipt Date: 20160926
  Transmission Date: 20161109
  Serious: No
  Sender: FDA-Public Use
  Company Number: US-ASTRAZENECA-2016SE81170

PATIENT
  Age: 674 Month
  Sex: Female
  Weight: 59.4 kg

DRUGS (6)
  1. TUDORZA PRESSAIR [Suspect]
     Active Substance: ACLIDINIUM BROMIDE
     Indication: BRONCHITIS CHRONIC
     Dosage: 400 MCG, ONE PUFF, TWO TIMES A DAY
     Route: 055
     Dates: start: 20160723
  2. TUDORZA PRESSAIR [Suspect]
     Active Substance: ACLIDINIUM BROMIDE
     Indication: EMPHYSEMA
     Dosage: 400 MCG, ONE PUFF, TWO TIMES A DAY
     Route: 055
     Dates: start: 20160723
  3. ALBUTEROL. [Concomitant]
     Active Substance: ALBUTEROL
     Dosage: 0.5MG/3MG PER 3ML EVERY 4 HOURS AS NEEDED
     Route: 055
  4. TUDORZA PRESSAIR [Suspect]
     Active Substance: ACLIDINIUM BROMIDE
     Indication: CHRONIC OBSTRUCTIVE PULMONARY DISEASE
     Dosage: 400 MCG, ONE PUFF, TWO TIMES A DAY
     Route: 055
     Dates: start: 20160723
  5. VENTOLIN [Concomitant]
     Active Substance: ALBUTEROL SULFATE
     Dosage: EVERY 6 HOURS AS NEEDED
     Route: 055
  6. SYMBICORT [Suspect]
     Active Substance: BUDESONIDE\FORMOTEROL FUMARATE DIHYDRATE
     Indication: WHEEZING
     Dosage: 80/4.5MCG 2 PUFFS, TWO TIMES A DAY
     Route: 055

REACTIONS (6)
  - Wheezing [Unknown]
  - Product quality issue [Unknown]
  - Nasopharyngitis [Not Recovered/Not Resolved]
  - Immunodeficiency [Unknown]
  - Dyspnoea [Unknown]
  - Irritability [Unknown]

NARRATIVE: CASE EVENT DATE: 201607
